FAERS Safety Report 8512690-2 (Version None)
Quarter: 2012Q3

REPORT INFORMATION
  Report Type: 
  Country: None (occurrence: None)
  Receive Date: 20120716
  Receipt Date: 20120711
  Transmission Date: 20120928
  Serious: Yes (Other)
  Sender: FDA-Public Use
  Company Number: US-PFIZER INC-2012140019

PATIENT
  Sex: Male
  Weight: 106 kg

DRUGS (15)
  1. TERAZOSIN HYDROCHLORIDE [Concomitant]
  2. OYSCO [Concomitant]
  3. LIPITOR [Suspect]
     Dosage: 20 MG, 1X/DAY
     Route: 048
  4. ASPIR-LOW [Concomitant]
     Dosage: 81 MG, 1X/DAY
     Route: 048
  5. SAVELLA [Concomitant]
  6. LASIX [Concomitant]
  7. NITROGLYCERIN [Concomitant]
     Indication: CHEST PAIN
     Dosage: 0.4 MG, AS NEEDED
     Route: 060
  8. METOPROLOL TARTRATE [Concomitant]
     Dosage: 100 MG, 2X/DAY
     Route: 048
  9. GUANFACINE HYDROCHLORIDE [Concomitant]
  10. ALLOPURINOL [Concomitant]
  11. RANEXA [Concomitant]
     Dosage: 500 MG, 2X/DAY
     Route: 048
  12. FAMOTIDINE [Concomitant]
     Dosage: 40 MG, 2X/DAY
     Route: 048
  13. NITROSTAT [Suspect]
     Dosage: 0.4 MG, AS NEEDED
     Dates: start: 20120531
  14. PLAVIX [Concomitant]
     Dosage: 75 MG, 1X/DAY
     Route: 048
  15. JANUVIA [Concomitant]

REACTIONS (2)
  - DIZZINESS [None]
  - BLOOD PRESSURE INCREASED [None]
